FAERS Safety Report 8591157 (Version 5)
Quarter: 2013Q4

REPORT INFORMATION
  Report Type: Spontaneous
  Country: TW (occurrence: TW)
  Receive Date: 20120601
  Receipt Date: 20131031
  Transmission Date: 20140711
  Serious: Yes (Other)
  Sender: FDA-Public Use
  Company Number: TW-MERCK SHARP + DOHME-1205USA04044

PATIENT
  Sex: Female

DRUGS (1)
  1. PROSCAR [Suspect]
     Indication: BENIGN PROSTATIC HYPERPLASIA
     Dosage: 5 MG, QD
     Route: 048
     Dates: start: 20120516, end: 201205

REACTIONS (2)
  - Medication error [Unknown]
  - Exposure during pregnancy [Unknown]
